FAERS Safety Report 8285095-X (Version None)
Quarter: 2012Q2

REPORT INFORMATION
  Report Type: 
  Country: None (occurrence: None)
  Receive Date: 20120413
  Receipt Date: 20110506
  Transmission Date: 20120825
  Serious: No
  Sender: FDA-Public Use
  Company Number: US-ASTRAZENECA-2011SE27960

PATIENT
  Age: 62 Year
  Sex: Female

DRUGS (1)
  1. NEXIUM [Suspect]
     Dosage: 2 PILLS PER DAY
     Route: 048

REACTIONS (7)
  - DYSPEPSIA [None]
  - DRUG INEFFECTIVE [None]
  - THROAT IRRITATION [None]
  - REGURGITATION [None]
  - DRUG DOSE OMISSION [None]
  - CHOKING SENSATION [None]
  - DRUG ADMINISTRATION ERROR [None]
